FAERS Safety Report 10061123 (Version 1)
Quarter: 2014Q2

REPORT INFORMATION
  Report Type: Report from Study
  Country: BR (occurrence: BR)
  Receive Date: 20140406
  Receipt Date: 20140406
  Transmission Date: 20141212
  Serious: Yes (Other)
  Sender: FDA-Public Use
  Company Number: BR-US-EMD SERONO, INC.-7279292

PATIENT
  Age: 11 Year
  Sex: Female

DRUGS (1)
  1. SAIZEN [Suspect]
     Indication: GROWTH HORMONE DEFICIENCY
     Dates: start: 20131203, end: 20140115

REACTIONS (2)
  - Renal failure chronic [Not Recovered/Not Resolved]
  - Hypertension [Recovering/Resolving]
